FAERS Safety Report 22961095 (Version 3)
Quarter: 2023Q4

REPORT INFORMATION
  Report Type: Report from Study
  Country: US (occurrence: US)
  Receive Date: 20230920
  Receipt Date: 20231220
  Transmission Date: 20240110
  Serious: Yes (Other)
  Sender: FDA-Public Use
  Company Number: US-ABBVIE-5411303

PATIENT
  Age: 74 Year
  Sex: Female
  Weight: 67.13 kg

DRUGS (13)
  1. RINVOQ [Suspect]
     Active Substance: UPADACITINIB
     Indication: Rheumatoid arthritis
     Route: 048
     Dates: start: 20210304, end: 2023
  2. RINVOQ [Suspect]
     Active Substance: UPADACITINIB
     Indication: Rheumatoid arthritis
     Route: 048
     Dates: start: 202311
  3. FLONASE [Concomitant]
     Active Substance: FLUTICASONE PROPIONATE
     Indication: Rhinitis
     Dosage: 50MCG?ONE SPRAY BY NASAL ROUTE?QUANTITY 15.8 ML?ACTUATION NASAL SPRAY
     Route: 045
  4. FOLVITE [Concomitant]
     Active Substance: FOLIC ACID
     Indication: Product used for unknown indication
     Dosage: TOOK 5 TABLETS DAILY?QUANTITY 540 TABLETS
     Route: 048
  5. PLAQUENIL [Concomitant]
     Active Substance: HYDROXYCHLOROQUINE SULFATE
     Indication: Product used for unknown indication
     Dosage: 1 TABLET EVERY OTHER DAY ALTERNATING WITH 2 TABLETS QOD?QUANTITY 135 TABLETS
  6. ANTIVERT [Concomitant]
     Active Substance: MECLIZINE HYDROCHLORIDE
     Indication: Dizziness
     Route: 048
  7. ZANAFLEX [Concomitant]
     Active Substance: TIZANIDINE HYDROCHLORIDE
     Indication: Product used for unknown indication
     Dosage: TAKE NIGHTLY AS NEEDED
     Route: 048
  8. DOCONEXENT\ ICOSAPENT\ FISH OIL\ OMEGA-3 FATTY ACIDS [Concomitant]
     Active Substance: DOCONEXENT\ ICOSAPENT\ FISH OIL\ OMEGA-3 FATTY ACIDS
     Indication: Product used for unknown indication
     Dosage: TAKE 1 CAPSULE BY MOUTH 2 CAPSULES DAILY?1,000 MG (120 MG-180 MG) CAPSULE
     Route: 048
  9. CALCIUM CARBONATE\CHOLECALCIFEROL [Concomitant]
     Active Substance: CALCIUM CARBONATE\CHOLECALCIFEROL
     Indication: Product used for unknown indication
     Dosage: 600 MG(1,500MG) 400 UNIT PER TABLET?TAKE 2 TABLETS
     Route: 048
     Dates: start: 2023
  10. LOTENSIN [Concomitant]
     Active Substance: BENAZEPRIL HYDROCHLORIDE
     Indication: Product used for unknown indication
     Dosage: TAKE 1 TABLET (20 MG TOTAL) BY MOUTH EVERY MORNING
     Route: 048
     Dates: start: 2023
  11. CYMBALTA [Concomitant]
     Active Substance: DULOXETINE HYDROCHLORIDE
     Indication: Product used for unknown indication
     Dosage: DELAYED RELEASE?TAKE 1 CAPSULE (30 MG TOTAL) BY MOUTH 2 (TWO) TIMES A DAY
     Route: 048
     Dates: end: 2023
  12. DELTASONE [Concomitant]
     Active Substance: PREDNISONE
     Indication: Product used for unknown indication
     Dosage: TAKE 1 TABLET (5 MG TOTAL) BY MOUTH DAILY
     Route: 048
     Dates: start: 2023
  13. SYNTHROID [Concomitant]
     Active Substance: LEVOTHYROXINE SODIUM
     Indication: Product used for unknown indication
     Dosage: TAKE 1 TABLET (75 MCG TOTAL) BY MOUTH EVERY MORNING BEFORE BREAKFAST
     Route: 048
     Dates: start: 2023

REACTIONS (1)
  - Colorectal cancer [Recovering/Resolving]

NARRATIVE: CASE EVENT DATE: 20230828
